FAERS Safety Report 18217124 (Version 1)
Quarter: 2020Q3

REPORT INFORMATION
  Report Type: Other
  Country: FR (occurrence: FR)
  Receive Date: 20200901
  Receipt Date: 20200901
  Transmission Date: 20201103
  Serious: Yes (Hospitalization)
  Sender: FDA-Public Use
  Company Number: FR-COVIS PHARMA B.V.-2020COV00413

PATIENT
  Age: 66 Year
  Sex: Male
  Weight: 118 kg

DRUGS (19)
  1. SECUKINUMAB. [Concomitant]
     Active Substance: SECUKINUMAB
  2. ANORO ELLIPTA [Concomitant]
     Active Substance: UMECLIDINIUM BROMIDE\VILANTEROL TRIFENATATE
  3. FLUOXETINE HYDROCHLORIDE. [Concomitant]
     Active Substance: FLUOXETINE HYDROCHLORIDE
  4. IRBESARTAN. [Concomitant]
     Active Substance: IRBESARTAN
  5. ZOPICLONE [Concomitant]
     Active Substance: ZOPICLONE
  6. CORTANCYL [Concomitant]
     Active Substance: PREDNISONE
  7. METFORMIN HYDROCHLORIDE. [Concomitant]
     Active Substance: METFORMIN HYDROCHLORIDE
  8. CALCIDOSE [CALCIUM CARBONATE] [Concomitant]
     Active Substance: CALCIUM CARBONATE
  9. LEVOTHYROXINE SODIUM. [Concomitant]
     Active Substance: LEVOTHYROXINE SODIUM
  10. ELIQUIS [Concomitant]
     Active Substance: APIXABAN
  11. AMYCOR ONYCHOSET [Concomitant]
     Active Substance: BIFONAZOLE\UREA
  12. OMEPRAZOLE MAGNESIUM. [Suspect]
     Active Substance: OMEPRAZOLE MAGNESIUM
     Indication: GASTRIC ULCER HELICOBACTER
     Dosage: 20 MG, 1X/DAY
     Route: 048
     Dates: start: 20200625, end: 20200703
  13. BISMUTH SUBSALICYLATE, METRONIDAZOLE,TETRACYCLINE [Suspect]
     Active Substance: BISMUTH SUBSALICYLATE\METRONIDAZOLE\TETRACYCLINE HYDROCHLORIDE
     Indication: GASTRIC ULCER HELICOBACTER
     Dosage: 140MG/125MG/125 MG, 12 DF DAILY
     Route: 048
     Dates: start: 20200625, end: 20200703
  14. ZYMAD [Concomitant]
     Active Substance: CHOLECALCIFEROL
  15. OMIX [Concomitant]
     Active Substance: TAMSULOSIN HYDROCHLORIDE
  16. CETIRIZINE [Concomitant]
     Active Substance: CETIRIZINE HYDROCHLORIDE
  17. PRIMPERAN [Concomitant]
     Active Substance: METOCLOPRAMIDE HYDROCHLORIDE
  18. DOLIPRANE [Concomitant]
     Active Substance: ACETAMINOPHEN
  19. LIRAGLUTIDE [Concomitant]
     Active Substance: LIRAGLUTIDE

REACTIONS (8)
  - Headache [Recovered/Resolved]
  - Urinary incontinence [Recovering/Resolving]
  - Hallucination [Recovered/Resolved]
  - Myalgia [Recovered/Resolved]
  - Dysuria [Recovering/Resolving]
  - Muscular weakness [Recovered/Resolved]
  - Visual acuity reduced [Recovered/Resolved]
  - Somnolence [Recovered/Resolved]

NARRATIVE: CASE EVENT DATE: 202007
